FAERS Safety Report 8758238 (Version 1)
Quarter: 2012Q4

REPORT INFORMATION
  Report Type: 
  Country: US (occurrence: US)
  Receive Date: 20120829
  Receipt Date: 20120829
  Transmission Date: 20130627
  Serious: Yes (Other)
  Sender: FDA-Public Use
  Company Number: US-BAYER-2012-088955

PATIENT
  Age: 86 Year
  Sex: Female
  Weight: 53.52 kg

DRUGS (3)
  1. BAYER GENUINE ASPIRIN ORIGINAL STRENGTH [Suspect]
     Indication: ISCHAEMIC HEART DISEASE PROPHYLAXIS
     Dosage: 1 DF, QD
     Dates: start: 201101
  2. LIPITOR [Concomitant]
  3. ACIPHEX [Concomitant]

REACTIONS (2)
  - Laceration [Recovered/Resolved]
  - Coagulation time prolonged [Recovered/Resolved]
